FAERS Safety Report 16964883 (Version 1)
Quarter: 2019Q4

REPORT INFORMATION
  Report Type: Spontaneous
  Country: US (occurrence: US)
  Receive Date: 20191028
  Receipt Date: 20191028
  Transmission Date: 20200122
  Serious: Yes (Hospitalization, Other)
  Sender: FDA-Public Use
  Company Number: US-TEVA-2019-US-1128834

PATIENT
  Age: 34 Year
  Sex: Female

DRUGS (12)
  1. ASPIRIN. [Suspect]
     Active Substance: ASPIRIN
     Dosage: 81 MILLIGRAM DAILY;
     Route: 048
  2. RAMIPRIL. [Suspect]
     Active Substance: RAMIPRIL
     Indication: MICROVASCULAR CORONARY ARTERY DISEASE
     Route: 065
     Dates: end: 200911
  3. PREDNISONE. [Suspect]
     Active Substance: PREDNISONE
     Indication: SYSTEMIC LUPUS ERYTHEMATOSUS
     Route: 065
     Dates: end: 200911
  4. AZATHIOPRINE. [Suspect]
     Active Substance: AZATHIOPRINE
     Indication: RHEUMATOID ARTHRITIS
  5. AZATHIOPRINE. [Suspect]
     Active Substance: AZATHIOPRINE
     Indication: SYSTEMIC LUPUS ERYTHEMATOSUS
     Dosage: 150 MILLIGRAM DAILY; THREE TIMES A DAY
     Route: 048
     Dates: end: 200911
  6. PLAQUENIL [Suspect]
     Active Substance: HYDROXYCHLOROQUINE SULFATE
     Indication: SYSTEMIC LUPUS ERYTHEMATOSUS
     Dosage: 400 MILLIGRAM DAILY;
     Route: 048
     Dates: end: 200911
  7. EPRATUZUMAB [Suspect]
     Active Substance: EPRATUZUMAB
     Route: 065
     Dates: end: 200911
  8. CARVEDILOL. [Suspect]
     Active Substance: CARVEDILOL
     Indication: MICROVASCULAR CORONARY ARTERY DISEASE
     Route: 065
     Dates: end: 200911
  9. PLAQUENIL [Suspect]
     Active Substance: HYDROXYCHLOROQUINE SULFATE
     Indication: RHEUMATOID ARTHRITIS
  10. ATORVASTATIN [Suspect]
     Active Substance: ATORVASTATIN
     Indication: MICROVASCULAR CORONARY ARTERY DISEASE
     Route: 065
     Dates: end: 200911
  11. PREDNISONE. [Suspect]
     Active Substance: PREDNISONE
     Indication: RHEUMATOID ARTHRITIS
     Dosage: RESTARTED
     Route: 065
     Dates: start: 201004
  12. ETHINYLESTRADIOL/NORETHISTERONE ACETATE [Suspect]
     Active Substance: ETHINYL ESTRADIOL\NORETHINDRONE ACETATE
     Indication: CONTRACEPTION
     Route: 065
     Dates: end: 200911

REACTIONS (4)
  - Maternal exposure during pregnancy [Unknown]
  - Systemic lupus erythematosus [Recovered/Resolved]
  - Pregnancy on contraceptive [Unknown]
  - Rebound effect [Recovered/Resolved]

NARRATIVE: CASE EVENT DATE: 201004
